FAERS Safety Report 4934167-3 (Version None)
Quarter: 2006Q1

REPORT INFORMATION
  Report Type: 
  Country: None (occurrence: None)
  Receive Date: 20060303
  Receipt Date: 20060220
  Transmission Date: 20060701
  Serious: Yes (Other)
  Sender: FDA-Public Use
  Company Number: 2006025531

PATIENT
  Age: 51 Year
  Sex: Female
  Weight: 136.0791 kg

DRUGS (3)
  1. DIFLUCAN [Suspect]
     Indication: FUNGAL INFECTION
     Dosage: 200 MG (200 MG, 1 IN 1 WK), ORAL
     Route: 048
     Dates: start: 19980101, end: 19980101
  2. CHOLESTEROL- AND TRIGLYCERIDE REDUCERS (CHOLESTEROL- AND TRIGLYCERIDE [Concomitant]
  3. DRUG USED IN DIABETS (DRUG USED IN DIABETES) [Concomitant]

REACTIONS (4)
  - AUTOIMMUNE HEPATITIS [None]
  - DIARRHOEA [None]
  - FAECES DISCOLOURED [None]
  - WEIGHT DECREASED [None]
